FAERS Safety Report 6993371-3 (Version None)
Quarter: 2010Q3

REPORT INFORMATION
  Report Type: 
  Country: None (occurrence: None)
  Receive Date: 20100917
  Receipt Date: 20091228
  Transmission Date: 20110219
  Serious: No
  Sender: FDA-Public Use
  Company Number: US-ASTRAZENECA-2009SE31943

PATIENT
  Age: 47 Year
  Sex: Female

DRUGS (4)
  1. SEROQUEL [Suspect]
     Indication: BIPOLAR DISORDER
     Dosage: 400-600 MG DAILY
     Route: 048
  2. PROMETRIUM [Concomitant]
  3. ESTRADIOL [Concomitant]
  4. WELLBUTRIN [Concomitant]

REACTIONS (2)
  - ALOPECIA [None]
  - MIGRAINE [None]
